FAERS Safety Report 7812028-X (Version None)
Quarter: 2011Q4

REPORT INFORMATION
  Report Type: 
  Country: None (occurrence: None)
  Receive Date: 20111011
  Receipt Date: 20110930
  Transmission Date: 20120403
  Serious: Yes (Other)
  Sender: FDA-Public Use
  Company Number: DSA_47421_2011

PATIENT
  Sex: Female

DRUGS (5)
  1. SEROQUEL [Concomitant]
  2. KLIMADYNON [Concomitant]
  3. VALPROATE SODIUM [Concomitant]
  4. LEVOTHYROXINE SODIUM [Concomitant]
  5. BUPROPION HYDROCHLORIDE [Suspect]
     Indication: BIPOLAR DISORDER
     Dosage: 150 MG QD ORAL
     Route: 048
     Dates: start: 20110713

REACTIONS (2)
  - CONDITION AGGRAVATED [None]
  - PSORIASIS [None]
